FAERS Safety Report 4628261-4 (Version None)
Quarter: 2005Q2

REPORT INFORMATION
  Report Type: 
  Country: None (occurrence: None)
  Receive Date: 20050401
  Receipt Date: 20050321
  Transmission Date: 20051028
  Serious: Yes (Hospitalization, Other)
  Sender: FDA-Public Use
  Company Number: 200510535BCC

PATIENT
  Age: 66 Year
  Sex: Female
  Weight: 78.0187 kg

DRUGS (17)
  1. ALEVE [Suspect]
     Indication: BACK PAIN
     Dosage: 440 MG, BID, ORAL
     Route: 048
     Dates: end: 20050204
  2. PREMARINA [Concomitant]
  3. MAXZIDE [Concomitant]
  4. AZMACORT [Concomitant]
  5. FLONASE [Concomitant]
  6. PRILOSEC [Concomitant]
  7. BEXTRA [Concomitant]
  8. ECHINACEA [Concomitant]
  9. GOLD SEAL ANTISEPTIC POWDER [Concomitant]
  10. FLAXSEED OIL [Concomitant]
  11. MULTI-VITAMIN [Concomitant]
  12. VITAMIN E [Concomitant]
  13. GARLIC [Concomitant]
  14. MOVE FREE [Concomitant]
  15. CALCIUM GLUCONATE [Concomitant]
  16. MAGNESIUM [Concomitant]
  17. VITAMIN D [Concomitant]

REACTIONS (12)
  - ANAEMIA [None]
  - ASTHENIA [None]
  - CHEST PAIN [None]
  - CHILLS [None]
  - EPISTAXIS [None]
  - GASTROOESOPHAGEAL REFLUX DISEASE [None]
  - IDIOPATHIC URTICARIA [None]
  - NIGHT SWEATS [None]
  - PYELONEPHRITIS [None]
  - RENAL ARTERIOSCLEROSIS [None]
  - RENAL FAILURE CHRONIC [None]
  - RENAL MASS [None]
